FAERS Safety Report 9339170 (Version 1)
Quarter: 2013Q2

REPORT INFORMATION
  Report Type: Spontaneous
  Country: US (occurrence: US)
  Receive Date: 20130610
  Receipt Date: 20130610
  Transmission Date: 20140414
  Serious: Yes (Death)
  Sender: FDA-Public Use
  Company Number: US-TEVA-410583USA

PATIENT
  Sex: Female

DRUGS (2)
  1. PROAIR HFA [Suspect]
  2. QVAR [Suspect]
     Dosage: UG/1

REACTIONS (1)
  - Death [Fatal]
